FAERS Safety Report 8989004 (Version 2)
Quarter: 2013Q1

REPORT INFORMATION
  Report Type: Report from Study
  Country: US (occurrence: US)
  Receive Date: 20121228
  Receipt Date: 20130114
  Transmission Date: 20140127
  Serious: Yes (Hospitalization)
  Sender: FDA-Public Use
  Company Number: US-ACTELION-A-NJ2012-76758

PATIENT
  Age: 66 Year
  Sex: Female

DRUGS (1)
  1. TRACLEER [Suspect]
     Indication: PULMONARY ARTERIAL HYPERTENSION
     Dosage: UNK
     Route: 048
     Dates: start: 20121115

REACTIONS (4)
  - Multi-organ failure [Recovering/Resolving]
  - Pulmonary arterial hypertension [Recovering/Resolving]
  - Oxygen saturation decreased [Recovering/Resolving]
  - Dizziness [Recovering/Resolving]
